FAERS Safety Report 23589129 (Version 2)
Quarter: 2024Q1

REPORT INFORMATION
  Report Type: Report from Study
  Country: CA (occurrence: CA)
  Receive Date: 20240303
  Receipt Date: 20240305
  Transmission Date: 20240410
  Serious: Yes (Other)
  Sender: FDA-Public Use
  Company Number: CA-ABBVIE-5659978

PATIENT
  Sex: Female
  Weight: 40 kg

DRUGS (2)
  1. SKYRIZI [Suspect]
     Active Substance: RISANKIZUMAB-RZAA
     Indication: Crohn^s disease
     Dosage: WEEK 8?THIRD SKYRIZI INFUSION
     Route: 042
     Dates: start: 20240228
  2. SKYRIZI [Suspect]
     Active Substance: RISANKIZUMAB-RZAA
     Indication: Crohn^s disease
     Route: 042
     Dates: end: 2023

REACTIONS (2)
  - Gallbladder disorder [Unknown]
  - Weight gain poor [Not Recovered/Not Resolved]
